FAERS Safety Report 6406167-8 (Version None)
Quarter: 2009Q4

REPORT INFORMATION
  Report Type: 
  Country: None (occurrence: None)
  Receive Date: 20091019
  Receipt Date: 20090820
  Transmission Date: 20100525
  Serious: Yes (Other)
  Sender: FDA-Public Use
  Company Number: US-BAYER-200837843NA

PATIENT
  Age: 75 Year
  Sex: Female
  Weight: 59 kg

DRUGS (48)
  1. MAGNEVIST [Suspect]
     Indication: ANGIOGRAM
     Dates: start: 20001226, end: 20001226
  2. MAGNEVIST [Suspect]
     Dates: start: 20010925, end: 20010925
  3. MAGNEVIST [Suspect]
     Dosage: TOTAL DAILY DOSE: 20 ML
     Dates: start: 20041031, end: 20041031
  4. MAGNEVIST [Suspect]
     Dosage: TOTAL DAILY DOSE: 16 ML
     Dates: start: 20040428, end: 20040428
  5. OMNISCAN [Suspect]
     Indication: ANGIOGRAM
     Dates: start: 20040503, end: 20040503
  6. OPTIMARK [Suspect]
     Indication: ANGIOGRAM
     Dates: start: 20030715, end: 20030715
  7. OPTIMARK [Suspect]
     Dates: start: 20040531, end: 20040531
  8. OPTIMARK [Suspect]
     Dates: start: 20040831, end: 20040831
  9. MULTIHANCE [Suspect]
  10. PROHANCE [Suspect]
  11. NEURONTIN [Concomitant]
  12. HYDRALAZINE [Concomitant]
  13. MIRALAX [Concomitant]
  14. HYDROCODONE [Concomitant]
  15. ZOLOFT [Concomitant]
     Dosage: TOTAL DAILY DOSE: 75 MG
     Route: 048
  16. AVAPRO [Concomitant]
     Dosage: TOTAL DAILY DOSE: 300 MG
     Route: 048
  17. COUMADIN [Concomitant]
     Dosage: TOTAL DAILY DOSE: 4 MG
     Route: 048
  18. COUMADIN [Concomitant]
     Dosage: TOTAL DAILY DOSE: 3 MG
  19. COZAAR [Concomitant]
  20. FOSRENOL [Concomitant]
  21. SERTRALINE HCL [Concomitant]
  22. ZIAC [Concomitant]
     Indication: HYPERTENSION
     Dates: start: 19900101
  23. LISINOPRIL [Concomitant]
     Indication: HYPERTENSION
     Dates: start: 19980101
  24. IRON SUPPLEMENTS [Concomitant]
  25. AGRYLIN [Concomitant]
     Indication: PLATELET COUNT INCREASED
     Dates: start: 20030101, end: 20040101
  26. BENICAR [Concomitant]
  27. HYDROCHLOROTHIAZIDE [Concomitant]
  28. NORVASC [Concomitant]
  29. TOPROL-XL [Concomitant]
  30. HYDROXYUREA [Concomitant]
     Indication: PLATELET COUNT INCREASED
     Dosage: TOTAL DAILY DOSE: 500 MG
  31. VERAPAMIL [Concomitant]
     Dosage: 240 MG QAM AND 120 MG QPM
     Route: 048
  32. EDECRIN [Concomitant]
     Route: 048
  33. AGGRENOX [Concomitant]
  34. FLEXERIL [Concomitant]
     Dosage: TOTAL DAILY DOSE: 10 MG
  35. XANAX [Concomitant]
     Dosage: PRN
     Route: 048
  36. MULTIPLE VITAMIN [Concomitant]
  37. DIATX [Concomitant]
  38. FOSRENOL [Concomitant]
     Dosage: TOTAL DAILY DOSE: 500 MG
     Dates: start: 20070901
  39. PROCRIT [Concomitant]
     Dosage: WITH DIALYSIS
  40. IMDUR [Concomitant]
     Dosage: QAM
  41. WELLBUTRIN SR [Concomitant]
     Route: 048
  42. PROTONIX [Concomitant]
     Dosage: TOTAL DAILY DOSE: 40 MG
     Route: 048
  43. ZEMPLAR [Concomitant]
     Dosage: TOTAL DAILY DOSE: 1 DF
     Route: 048
  44. INSPRA [Concomitant]
     Dosage: TOTAL DAILY DOSE: 25 MG
     Route: 048
  45. ARANESP [Concomitant]
     Dates: start: 20060601
  46. NEUPOGEN [Concomitant]
     Dates: start: 20060601
  47. FERRLECIT [Concomitant]
  48. VISIPAQUE [Concomitant]

REACTIONS (38)
  - ANHEDONIA [None]
  - ANXIETY [None]
  - ASTHENIA [None]
  - BURNING SENSATION [None]
  - DECREASED APPETITE [None]
  - DERMATITIS EXFOLIATIVE [None]
  - DYSPHAGIA [None]
  - EMOTIONAL DISTRESS [None]
  - ERYTHEMA [None]
  - FATIGUE [None]
  - FIBROSIS [None]
  - GENERAL PHYSICAL HEALTH DETERIORATION [None]
  - HYPOAESTHESIA [None]
  - INJURY [None]
  - JOINT RANGE OF MOTION DECREASED [None]
  - JOINT STIFFNESS [None]
  - LYMPHOEDEMA [None]
  - MOBILITY DECREASED [None]
  - MUSCULOSKELETAL STIFFNESS [None]
  - MYALGIA [None]
  - NEPHROGENIC SYSTEMIC FIBROSIS [None]
  - OEDEMA PERIPHERAL [None]
  - PAIN [None]
  - PAIN IN EXTREMITY [None]
  - PERIORBITAL OEDEMA [None]
  - PERIPHERAL COLDNESS [None]
  - POST INFLAMMATORY PIGMENTATION CHANGE [None]
  - PRURITUS [None]
  - RASH ERYTHEMATOUS [None]
  - RASH MACULAR [None]
  - SCAR [None]
  - SCLERODERMA [None]
  - SENSATION OF HEAVINESS [None]
  - SKIN EXFOLIATION [None]
  - SKIN HYPERTROPHY [None]
  - SKIN INDURATION [None]
  - SKIN PLAQUE [None]
  - SKIN TIGHTNESS [None]
